FAERS Safety Report 4263735-X (Version None)
Quarter: 2004Q1

REPORT INFORMATION
  Report Type: 
  Country: None (occurrence: None)
  Receive Date: 20040102
  Receipt Date: 20031216
  Transmission Date: 20041129
  Serious: Yes (Death, Hospitalization, Other)
  Sender: FDA-Public Use
  Company Number: US_030795870

PATIENT
  Sex: Female

DRUGS (3)
  1. VANCOMYCIN [Suspect]
     Indication: STAPHYLOCOCCAL INFECTION
     Route: 042
  2. PROZAC [Suspect]
     Dosage: UNK
     Route: 048
  3. COUMADIN [Concomitant]

REACTIONS (8)
  - CONTUSION [None]
  - IMMUNE SYSTEM DISORDER [None]
  - MOUTH HAEMORRHAGE [None]
  - MULTI-ORGAN FAILURE [None]
  - PYREXIA [None]
  - RED MAN SYNDROME [None]
  - SWELLING [None]
  - WHITE BLOOD CELL COUNT DECREASED [None]
